FAERS Safety Report 14569566 (Version 1)
Quarter: 2018Q1

REPORT INFORMATION
  Report Type: Spontaneous
  Country: US (occurrence: US)
  Receive Date: 20180224
  Receipt Date: 20180224
  Transmission Date: 20180509
  Serious: Yes (Other)
  Sender: FDA-Public Use
  Company Number: US-BION-006976

PATIENT
  Age: 11 Year
  Sex: Male

DRUGS (3)
  1. VALPROIC ACID. [Interacting]
     Active Substance: VALPROIC ACID
     Indication: PETIT MAL EPILEPSY
  2. RISPERIDONE. [Interacting]
     Active Substance: RISPERIDONE
     Indication: PSYCHOTIC SYMPTOM
  3. ETHOSUXIMIDE. [Suspect]
     Active Substance: ETHOSUXIMIDE
     Indication: PETIT MAL EPILEPSY

REACTIONS (3)
  - Hyperammonaemia [Recovered/Resolved]
  - Mania [Recovered/Resolved]
  - Drug interaction [Unknown]
